FAERS Safety Report 8276820-2 (Version None)
Quarter: 2012Q2

REPORT INFORMATION
  Report Type: 
  Country: None (occurrence: None)
  Receive Date: 20120412
  Receipt Date: 20120402
  Transmission Date: 20120825
  Serious: Yes (Hospitalization)
  Sender: FDA-Public Use
  Company Number: CA-NOVOPROD-348662

PATIENT
  Age: 54 Year
  Sex: Female
  Weight: 102 kg

DRUGS (20)
  1. ADALAT [Concomitant]
  2. CEPHALEXIN [Concomitant]
  3. CYMBALTA [Concomitant]
  4. MORPHINE SULFATE [Concomitant]
  5. SYNTHROID [Concomitant]
  6. TINZAPARIN [Concomitant]
  7. CLONAZEPAM [Concomitant]
  8. LEVEMIR [Concomitant]
  9. LYRICA [Concomitant]
  10. LIPIDIL [Concomitant]
  11. METFORMIN HCL [Concomitant]
  12. VITAMIN B12                        /00056201/ [Concomitant]
  13. PANTOPRAZOLE [Concomitant]
  14. REMERON [Concomitant]
  15. ALFUZOSIN HCL [Concomitant]
  16. VICTOZA [Suspect]
     Indication: PRODUCT USED FOR UNKNOWN INDICATION
     Dosage: 1.9 MG, QD
     Route: 058
  17. NOVORAPID [Concomitant]
  18. D-TABS [Concomitant]
     Dosage: 10000 UNIT
  19. DETROL LA [Concomitant]
  20. DOMPERIDONE [Concomitant]

REACTIONS (8)
  - BREAST PAIN [None]
  - PANCREATIC NECROSIS [None]
  - PANCREATIC ENZYMES INCREASED [None]
  - HEPATIC ENZYME INCREASED [None]
  - ABDOMINAL PAIN [None]
  - PANCREATITIS ACUTE [None]
  - DYSPNOEA [None]
  - DECREASED APPETITE [None]
